FAERS Safety Report 21834424 (Version 1)
Quarter: 2023Q1

REPORT INFORMATION
  Report Type: Spontaneous
  Country: US (occurrence: None)
  Receive Date: 20230108
  Receipt Date: 20230108
  Transmission Date: 20230418
  Serious: No
  Sender: FDA-Public Use
  Company Number: US-ROCHE-3190123

PATIENT
  Sex: Male

DRUGS (1)
  1. HEMLIBRA [Suspect]
     Active Substance: EMICIZUMAB-KXWH
     Indication: Idiopathic pulmonary fibrosis
     Route: 048
     Dates: start: 20220830, end: 20220919

REACTIONS (3)
  - Headache [Unknown]
  - Nausea [Unknown]
  - Fatigue [Unknown]
